FAERS Safety Report 15560462 (Version 14)
Quarter: 2020Q1

REPORT INFORMATION
  Report Type: Spontaneous
  Country: CA (occurrence: CA)
  Receive Date: 20181029
  Receipt Date: 20200317
  Transmission Date: 20200409
  Serious: Yes (Other)
  Sender: FDA-Public Use
  Company Number: CA-PFIZER INC-HQWYE106807AUG06

PATIENT
  Age: 18 Year
  Sex: Female

DRUGS (11)
  1. METHOTREXATE SODIUM. [Suspect]
     Active Substance: METHOTREXATE SODIUM
     Dosage: 15 MILLIGRAM, UNK
     Route: 065
  2. ACTEMRA [Suspect]
     Active Substance: TOCILIZUMAB
     Indication: RHEUMATOID ARTHRITIS
     Dosage: 8 MILLIGRAM/KILOGRAM, UNK
     Route: 042
  3. XELJANZ [Concomitant]
     Active Substance: TOFACITINIB CITRATE
     Dosage: UNK
  4. METHOTREXATE SODIUM. [Suspect]
     Active Substance: METHOTREXATE SODIUM
     Dosage: UNK
     Route: 065
     Dates: start: 2012
  5. INFLIXIMAB HOSPIRA [Suspect]
     Active Substance: INFLIXIMAB
     Indication: RHEUMATOID ARTHRITIS
     Dosage: UNK
     Route: 065
     Dates: start: 2005, end: 2007
  6. METHOTREXATE SODIUM. [Suspect]
     Active Substance: METHOTREXATE SODIUM
     Indication: RHEUMATOID ARTHRITIS
     Dosage: 15 MG, UNK
     Route: 065
     Dates: start: 1996, end: 1999
  7. LEFLUNOMIDE. [Suspect]
     Active Substance: LEFLUNOMIDE
     Indication: RHEUMATOID ARTHRITIS
     Dosage: 20 MG, UNK
     Route: 048
     Dates: start: 1999, end: 2001
  8. ENBREL [Suspect]
     Active Substance: ETANERCEPT
     Indication: RHEUMATOID ARTHRITIS
     Dosage: 80 MG, UNK
     Route: 058
     Dates: start: 2001, end: 2005
  9. APO-LEFLUNOMIDE [Suspect]
     Active Substance: LEFLUNOMIDE
     Indication: RHEUMATOID ARTHRITIS
     Dosage: 20 MILLIGRAM, UNK
     Route: 048
  10. ENBREL [Suspect]
     Active Substance: ETANERCEPT
     Dosage: 25 MILLIGRAM, 2 TIMES/WK
     Route: 058
     Dates: start: 20010515, end: 20060101
  11. ACTEMRA [Suspect]
     Active Substance: TOCILIZUMAB
     Dosage: 80 MILLIGRAM/KILOGRAM, UNK
     Route: 042

REACTIONS (13)
  - Nervous system disorder [Unknown]
  - Nausea [Unknown]
  - Off label use [Unknown]
  - Drug ineffective [Unknown]
  - Drug intolerance [Unknown]
  - Drug hypersensitivity [Unknown]
  - Amnesia [Unknown]
  - Product use issue [Unknown]
  - Condition aggravated [Unknown]
  - Arthropathy [Unknown]
  - Hypersensitivity [Unknown]
  - Rheumatoid arthritis [Unknown]
  - Treatment failure [Unknown]

NARRATIVE: CASE EVENT DATE: 20051030
